FAERS Safety Report 4329745-9 (Version None)
Quarter: 2004Q2

REPORT INFORMATION
  Report Type: 
  Country: None (occurrence: None)
  Receive Date: 20040401
  Receipt Date: 20021022
  Transmission Date: 20050107
  Serious: Yes (Hospitalization)
  Sender: FDA-Public Use
  Company Number: JP-GLAXOSMITHKLINE-B0283517A

PATIENT
  Age: 69 Year
  Sex: Male
  Weight: 58.5 kg

DRUGS (7)
  1. VALACYCLOVIR HCL [Suspect]
     Indication: HERPES ZOSTER
     Dosage: 1G PER DAY
     Route: 048
     Dates: start: 20021018, end: 20021019
  2. WARFARIN SODIUM [Concomitant]
     Indication: AORTIC VALVE STENOSIS
     Dosage: 3MG PER DAY
     Route: 048
  3. TEMOCAPRIL [Concomitant]
     Indication: HYPERTENSION
     Dosage: 2MG PER DAY
     Route: 048
  4. AMLODIPINE [Concomitant]
     Indication: HYPERTENSION
     Dosage: 5MG PER DAY
     Route: 048
  5. FAMOTIDINE [Concomitant]
     Indication: GASTRIC ULCER
     Dosage: 20MG PER DAY
     Route: 048
  6. ZOLPIDEM [Concomitant]
     Indication: INSOMNIA
     Dosage: 10MG PER DAY
     Route: 048
  7. SENNOSIDE [Concomitant]
     Indication: CONSTIPATION
     Dosage: 24MG TWICE PER DAY
     Route: 048

REACTIONS (4)
  - DIZZINESS [None]
  - DYSARTHRIA [None]
  - GAIT DISTURBANCE [None]
  - NERVOUS SYSTEM DISORDER [None]
